FAERS Safety Report 15570481 (Version 3)
Quarter: 2018Q4

REPORT INFORMATION
  Report Type: Report from Study
  Country: CO (occurrence: CO)
  Receive Date: 20181031
  Receipt Date: 20181213
  Transmission Date: 20190205
  Serious: Yes (Hospitalization, Other)
  Sender: FDA-Public Use
  Company Number: CO-JNJFOC-20181042259

PATIENT
  Age: 83 Year
  Sex: Male

DRUGS (5)
  1. DOLEX [Concomitant]
     Active Substance: IBUPROFEN
     Route: 065
  2. DIACEREIN [Concomitant]
     Active Substance: DIACEREIN
     Route: 065
  3. PREGABALIN. [Concomitant]
     Active Substance: PREGABALIN
     Route: 065
  4. PARACETAMOL [Concomitant]
     Active Substance: ACETAMINOPHEN
     Route: 065
  5. XARELTO [Suspect]
     Active Substance: RIVAROXABAN
     Indication: ATRIAL FIBRILLATION
     Route: 048
     Dates: start: 20151121

REACTIONS (3)
  - Cerebral thrombosis [Unknown]
  - Underdose [Unknown]
  - Headache [Not Recovered/Not Resolved]

NARRATIVE: CASE EVENT DATE: 20181023
